FAERS Safety Report 8473859-9 (Version None)
Quarter: 2012Q2

REPORT INFORMATION
  Report Type: 
  Country: None (occurrence: None)
  Receive Date: 20120628
  Receipt Date: 20120206
  Transmission Date: 20120825
  Serious: Yes (Death)
  Sender: FDA-Public Use
  Company Number: US-MYLANLABS-2012S1000048

PATIENT
  Age: 54 Year
  Sex: Male

DRUGS (4)
  1. CLOZAPINE [Suspect]
     Indication: SCHIZOPHRENIA
     Route: 048
     Dates: start: 20060119, end: 20111025
  2. BENADRYL [Concomitant]
  3. LITHIUM CARBONATE [Concomitant]
     Dates: start: 20100312, end: 20110131
  4. IBUPROFEN (ADVIL) [Concomitant]

REACTIONS (1)
  - DEATH [None]
